FAERS Safety Report 20855833 (Version 2)
Quarter: 2022Q3

REPORT INFORMATION
  Report Type: Spontaneous
  Country: DE (occurrence: DE)
  Receive Date: 20220520
  Receipt Date: 20220708
  Transmission Date: 20221026
  Serious: Yes (Hospitalization, Other)
  Sender: FDA-Public Use
  Company Number: None

PATIENT
  Age: 26 Year
  Sex: Male
  Weight: 72 kg

DRUGS (2)
  1. CIPROFLOXACIN [Suspect]
     Active Substance: CIPROFLOXACIN
     Indication: Prostatitis
     Dosage: 250 MG
     Route: 048
     Dates: start: 20171225, end: 20180101
  2. CIPROFLOXACIN [Suspect]
     Active Substance: CIPROFLOXACIN
     Indication: Prostatitis
     Dosage: 500 MG
     Route: 048
     Dates: start: 20180114, end: 20180202

REACTIONS (56)
  - Polyneuropathy [Recovered/Resolved with Sequelae]
  - Insomnia [Recovered/Resolved with Sequelae]
  - Disability [Recovered/Resolved with Sequelae]
  - Seizure [Unknown]
  - Iron overload [Unknown]
  - Depression [Unknown]
  - Depressed level of consciousness [Recovered/Resolved with Sequelae]
  - Disability [Recovered/Resolved with Sequelae]
  - Myoclonus [Unknown]
  - Gait disturbance [Unknown]
  - Disturbance in attention [Recovered/Resolved with Sequelae]
  - Circadian rhythm sleep disorder [Unknown]
  - Abdominal pain lower [Unknown]
  - Mental impairment [Recovered/Resolved with Sequelae]
  - Sleep disorder [Recovered/Resolved with Sequelae]
  - Enteritis [Recovered/Resolved with Sequelae]
  - Visual impairment [Recovered/Resolved with Sequelae]
  - Constipation [Recovered/Resolved with Sequelae]
  - Head discomfort [Recovered/Resolved with Sequelae]
  - Somnolence [Unknown]
  - Impaired self-care [Unknown]
  - Auditory disorder [Recovered/Resolved with Sequelae]
  - Impaired work ability [Unknown]
  - Headache [Recovered/Resolved with Sequelae]
  - Photophobia [Recovered/Resolved with Sequelae]
  - Abdominal pain [Unknown]
  - Hypersensitivity [Recovered/Resolved with Sequelae]
  - Quality of life decreased [Unknown]
  - Nervousness [Recovered/Resolved with Sequelae]
  - Toxicity to various agents [Recovered/Resolved with Sequelae]
  - Paraesthesia [Recovered/Resolved with Sequelae]
  - Hyperacusis [Recovered/Resolved with Sequelae]
  - Fatigue [Unknown]
  - Chronic fatigue syndrome [Recovered/Resolved with Sequelae]
  - Hypoaesthesia [Recovered/Resolved with Sequelae]
  - Feeling abnormal [Recovered/Resolved with Sequelae]
  - Depersonalisation/derealisation disorder [Unknown]
  - Inborn error of amino acid metabolism [Recovered/Resolved with Sequelae]
  - Aphasia [Recovered/Resolved with Sequelae]
  - Nervous system disorder [Recovered/Resolved with Sequelae]
  - Dysbiosis [Recovered/Resolved with Sequelae]
  - Dizziness [Recovered/Resolved with Sequelae]
  - Confusional state [Recovered/Resolved with Sequelae]
  - Muscle twitching [Recovered/Resolved with Sequelae]
  - Pain [Unknown]
  - Irritable bowel syndrome [Unknown]
  - Gait disturbance [Unknown]
  - Tinnitus [Unknown]
  - Anxiety [Unknown]
  - Hypoaesthesia [Recovered/Resolved with Sequelae]
  - Panic attack [Unknown]
  - Irritability [Recovered/Resolved with Sequelae]
  - Disorientation [Unknown]
  - Mood swings [Recovered/Resolved with Sequelae]
  - Dyskinesia [Recovered/Resolved with Sequelae]
  - Asthenia [Recovered/Resolved with Sequelae]

NARRATIVE: CASE EVENT DATE: 20171201
